FAERS Safety Report 7121072-X (Version None)
Quarter: 2010Q4

REPORT INFORMATION
  Report Type: 
  Country: None (occurrence: None)
  Receive Date: 20101124
  Receipt Date: 20101115
  Transmission Date: 20110411
  Serious: Yes (Hospitalization, Other)
  Sender: FDA-Public Use
  Company Number: RU-BRISTOL-MYERS SQUIBB COMPANY-15249840

PATIENT
  Age: 75 Year
  Sex: Female

DRUGS (11)
  1. BLINDED: APIXABAN [Suspect]
     Indication: THROMBOSIS PROPHYLAXIS
     Dosage: THERAPY INTERRUPTED ON 09AUG2010.RESTART ON:08OCT10.
     Route: 048
     Dates: start: 20090611
  2. WARFARIN SODIUM [Suspect]
     Indication: THROMBOSIS PROPHYLAXIS
     Dosage: THERAPY INTERRUPTED ON 09AUG2010.RESTART ON:08OCT10.
     Route: 048
     Dates: start: 20090611
  3. PLACEBO [Suspect]
     Indication: THROMBOSIS PROPHYLAXIS
     Dosage: THEAPY INTERRUPTED ON 09AUG2010.RESTART ON:08OCT10.
     Route: 048
     Dates: start: 20090611
  4. WARFARIN SODIUM [Suspect]
  5. HEPARIN [Suspect]
  6. ASPIRIN [Concomitant]
     Dates: start: 20090611
  7. METOPROLOL [Concomitant]
     Dates: start: 20090611
  8. RAMIPRIL [Concomitant]
     Dates: start: 20090611
  9. DIGOXIN [Concomitant]
     Dates: start: 20090611
  10. FUROSEMIDE [Concomitant]
     Dates: start: 20090611
  11. ALLOPURINOL [Concomitant]
     Dates: start: 20090611

REACTIONS (3)
  - ANGINA UNSTABLE [None]
  - CARDIAC FAILURE [None]
  - GASTRIC ULCER HAEMORRHAGE [None]
